FAERS Safety Report 5027401-5 (Version None)
Quarter: 2006Q2

REPORT INFORMATION
  Report Type: 
  Country: None (occurrence: None)
  Receive Date: 20060501
  Receipt Date: 20060215
  Transmission Date: 20061013
  Serious: No
  Sender: FDA-Public Use
  Company Number: 200610904BWH

PATIENT
  Age: 62 Year
  Sex: Male

DRUGS (16)
  1. NEXAVAR [Suspect]
     Indication: METASTASES TO BONE
     Dosage: 400 MG, BID, ORAL
     Route: 048
     Dates: start: 20060201
  2. NEXAVAR [Suspect]
     Indication: METASTATIC RENAL CELL CARCINOMA
     Dosage: 400 MG, BID, ORAL
     Route: 048
     Dates: start: 20060201
  3. TOPROL-XL [Concomitant]
  4. ISOSORBIDE [Concomitant]
  5. FOSINOPRIL SODIUM [Concomitant]
  6. ASPIRIN [Concomitant]
  7. CILOSTAZOL [Concomitant]
  8. NEXIUM [Concomitant]
  9. NEURONTIN [Concomitant]
  10. OXYCODONE HCL [Concomitant]
  11. CRESTOR [Concomitant]
  12. COUMADIN [Concomitant]
  13. COMBIVENT [Concomitant]
  14. FUROSEMIDE [Concomitant]
  15. CLARINEX [Concomitant]
  16. FLONASE [Concomitant]

REACTIONS (3)
  - EAR PAIN [None]
  - NASAL DISCOMFORT [None]
  - PAIN OF SKIN [None]
